FAERS Safety Report 6897522-0 (Version None)
Quarter: 2010Q3

REPORT INFORMATION
  Report Type: 
  Country: None (occurrence: None)
  Receive Date: 20100802
  Receipt Date: 20070602
  Transmission Date: 20110219
  Serious: Yes (Hospitalization)
  Sender: FDA-Public Use
  Company Number: US-PFIZER INC-2007032296

PATIENT
  Age: 49 Year
  Sex: Male

DRUGS (1)
  1. PREGABALIN [Suspect]

REACTIONS (3)
  - GAIT DISTURBANCE [None]
  - HEADACHE [None]
  - VERTIGO [None]
